FAERS Safety Report 24435320 (Version 1)
Quarter: 2024Q4

REPORT INFORMATION
  Report Type: Spontaneous
  Country: US (occurrence: US)
  Receive Date: 20241015
  Receipt Date: 20241015
  Transmission Date: 20250115
  Serious: Yes (Life-Threatening, Other)
  Sender: SHENZHEN TECHDOW PHARMACEUTICAL
  Company Number: AG-Techdow-2024Techdow000218

PATIENT
  Age: 66 Year
  Sex: Female

DRUGS (2)
  1. HEPARIN SODIUM [Suspect]
     Active Substance: HEPARIN SODIUM
     Indication: Anticoagulant therapy
     Dosage: UNKNOWN DOSAGE STARTED AFTER THE APPENDECTOMY AND TRANSITIONED TO APIXABAN ON HOSPITAL DAY 22
     Route: 041
  2. APIXABAN [Suspect]
     Active Substance: APIXABAN
     Indication: Anticoagulant therapy
     Dosage: UNKNOWN DOSAGE

REACTIONS (1)
  - Spontaneous splenic rupture [Recovered/Resolved]
